FAERS Safety Report 23895700 (Version 1)
Quarter: 2024Q2

REPORT INFORMATION
  Report Type: Spontaneous
  Country: PL (occurrence: PL)
  Receive Date: 20240524
  Receipt Date: 20240524
  Transmission Date: 20240715
  Serious: Yes (Hospitalization)
  Sender: FDA-Public Use
  Company Number: PL-ORG100014127-2024000140

PATIENT
  Age: 33 Year
  Sex: Female

DRUGS (1)
  1. MITOTANE [Suspect]
     Active Substance: MITOTANE
     Indication: Adjuvant therapy
     Dosage: WITH A THERAPEUTIC WINDOW OF 14-20 MG/L
     Route: 048

REACTIONS (5)
  - Heavy menstrual bleeding [Recovered/Resolved]
  - Iron deficiency anaemia [Recovered/Resolved]
  - Endometrial hyperplasia [Recovered/Resolved]
  - Uterine polyp [Recovered/Resolved]
  - Off label use [Recovered/Resolved]
